FAERS Safety Report 8593797-0 (Version None)
Quarter: 2012Q3

REPORT INFORMATION
  Report Type: 
  Country: None (occurrence: None)
  Receive Date: 20120814
  Receipt Date: 20120806
  Transmission Date: 20120928
  Serious: Yes (Hospitalization)
  Sender: FDA-Public Use
  Company Number: JP-BAXTER-2012BAX006825

PATIENT
  Age: 65 Year
  Sex: Female

DRUGS (8)
  1. SULFAMETHOXAZOLE AND TRIMETHOPRIM [Concomitant]
     Dosage: 1 DOSAGE FORM
     Route: 048
  2. ALENDRONATE SODIUM [Concomitant]
     Indication: PROPHYLAXIS
     Route: 048
  3. PREDNISOLONE [Suspect]
     Indication: IDIOPATHIC PULMONARY FIBROSIS
     Route: 048
     Dates: start: 20070702
  4. PIRFENIDONE [Concomitant]
     Indication: IDIOPATHIC PULMONARY FIBROSIS
     Route: 048
     Dates: start: 20091106, end: 20091118
  5. LEVOFLOXACIN [Concomitant]
     Indication: CYTOMEGALOVIRUS INFECTION
     Dates: start: 20091110, end: 20091116
  6. CYCLOPHOSPHAMIDE [Suspect]
     Indication: IDIOPATHIC PULMONARY FIBROSIS
     Route: 048
     Dates: start: 20080722, end: 20091116
  7. FAMOTIDINE [Concomitant]
     Indication: PROPHYLAXIS
     Route: 048
  8. PREDNISOLONE [Suspect]
     Route: 048
     Dates: start: 20070702

REACTIONS (2)
  - CYTOMEGALOVIRUS INFECTION [None]
  - PANCYTOPENIA [None]
